FAERS Safety Report 12935381 (Version 1)
Quarter: 2016Q4

REPORT INFORMATION
  Report Type: Spontaneous
  Country: US (occurrence: US)
  Receive Date: 20161114
  Receipt Date: 20161114
  Transmission Date: 20170207
  Serious: No
  Sender: FDA-Public Use
  Company Number: US-JAZZ-2016-US-018773

PATIENT

DRUGS (36)
  1. ACETAMINOPHEN. [Concomitant]
     Active Substance: ACETAMINOPHEN
  2. MINOCYCLINE                        /00232402/ [Concomitant]
  3. FUROSEMIDE                         /00032602/ [Concomitant]
     Active Substance: FUROSEMIDE
  4. XYREM [Suspect]
     Active Substance: SODIUM OXYBATE
     Dosage: 4.5 G, BID
     Route: 048
     Dates: start: 200809
  5. TAMSULOSIN HCL [Concomitant]
     Active Substance: TAMSULOSIN
  6. VICKS VAPORUB                      /00055801/ [Concomitant]
  7. XYREM [Suspect]
     Active Substance: SODIUM OXYBATE
     Indication: NARCOLEPSY
     Dosage: 2 G, BID
     Route: 048
     Dates: start: 200806, end: 200806
  8. XYREM [Suspect]
     Active Substance: SODIUM OXYBATE
     Indication: CATAPLEXY
     Dosage: DOSE ADJUSTMENTS
     Route: 048
     Dates: start: 200806, end: 200809
  9. OCEAN NASAL [Concomitant]
  10. B COMPLEX                          /00322001/ [Concomitant]
     Active Substance: CALCIUM PANTOTHENATE\CYANOCOBALAMIN\NIACINAMIDE\PYRIDOXINE HYDROCHLORIDE\RIBOFLAVIN\THIAMINE HYDROCHLORIDE
  11. CO Q 10                            /00517201/ [Concomitant]
  12. MENTHOL W/SALICYLIC ACID [Concomitant]
  13. QUININE SULFATE. [Concomitant]
     Active Substance: QUININE SULFATE
  14. SIMVASTATIN. [Concomitant]
     Active Substance: SIMVASTATIN
  15. ESOMEPRAZOLE MAGNESIUM DR [Concomitant]
     Active Substance: ESOMEPRAZOLE MAGNESIUM
  16. FISH OIL CONCENTRATE [Concomitant]
     Active Substance: FISH OIL
  17. LEVITRA [Concomitant]
     Active Substance: VARDENAFIL HYDROCHLORIDE TRIHYDRATE
  18. PROZAC [Concomitant]
     Active Substance: FLUOXETINE HYDROCHLORIDE
  19. VITAMIN B-12 TR [Concomitant]
  20. ACIPHEX DR [Concomitant]
  21. AMLODIPINE BESYLATE. [Concomitant]
     Active Substance: AMLODIPINE BESYLATE
  22. FLUTICASONE PROPIONATE. [Concomitant]
     Active Substance: FLUTICASONE PROPIONATE
  23. LORATADINE. [Concomitant]
     Active Substance: LORATADINE
  24. MELOXICAM. [Concomitant]
     Active Substance: MELOXICAM
  25. WELLBUTRIN [Concomitant]
     Active Substance: BUPROPION HYDROCHLORIDE
  26. EFFEXOR [Concomitant]
     Active Substance: VENLAFAXINE HYDROCHLORIDE
  27. FLUNISOLIDE. [Concomitant]
     Active Substance: FLUNISOLIDE
  28. PYRIDOXINE                         /00058902/ [Concomitant]
     Active Substance: PYRIDOXINE
  29. LIDOCAINE                          /00033402/ [Concomitant]
     Active Substance: LIDOCAINE
  30. PROVIGIL [Concomitant]
     Active Substance: MODAFINIL
  31. REFRESH CELLUVISC [Concomitant]
     Active Substance: CARBOXYMETHYLCELLULOSE SODIUM
  32. VIAGRA [Concomitant]
     Active Substance: SILDENAFIL CITRATE
  33. VITAMIN D3 [Concomitant]
     Active Substance: CHOLECALCIFEROL
  34. DEXTROAMPHETAMINE                  /00016601/ [Concomitant]
     Active Substance: DEXTROAMPHETAMINE
  35. PETROLATUM                         /01007601/ [Concomitant]
  36. THIAMINE                           /00056102/ [Concomitant]

REACTIONS (5)
  - Tinea pedis [Unknown]
  - Bronchitis [Unknown]
  - Arthropathy [Unknown]
  - Arthralgia [Not Recovered/Not Resolved]
  - Depression [Not Recovered/Not Resolved]
